FAERS Safety Report 12479649 (Version 2)
Quarter: 2016Q3

REPORT INFORMATION
  Report Type: Spontaneous
  Country: US (occurrence: US)
  Receive Date: 20160620
  Receipt Date: 20160726
  Transmission Date: 20161109
  Serious: Yes (Hospitalization)
  Sender: FDA-Public Use
  Company Number: US-PFIZER INC-2016286318

PATIENT
  Age: 52 Year
  Sex: Female

DRUGS (15)
  1. LYRICA [Suspect]
     Active Substance: PREGABALIN
     Indication: FIBROMYALGIA
  2. TOPAMAX [Concomitant]
     Active Substance: TOPIRAMATE
     Dosage: 100 MG, 1X/DAY
     Dates: start: 2014
  3. PROTONIX [Concomitant]
     Active Substance: PANTOPRAZOLE SODIUM
     Dosage: 40 MG, 1X/DAY
     Dates: start: 2014
  4. FLONASE [Concomitant]
     Active Substance: FLUTICASONE PROPIONATE
     Dosage: UNK, DAILY
     Dates: start: 2013
  5. ZOLOFT [Concomitant]
     Active Substance: SERTRALINE HYDROCHLORIDE
     Dosage: 100 MG, 1X/DAY
     Dates: start: 2014
  6. CLARITIN [Concomitant]
     Active Substance: LORATADINE
     Dosage: 10 MG, DAILY
     Dates: start: 2014
  7. PERCOCET [Concomitant]
     Active Substance: ACETAMINOPHEN\OXYCODONE HYDROCHLORIDE
     Dosage: UNK, AS NEEDED (OXYCODONE HYDROCHLORIDE 5, PARACETAMOL 325)
     Dates: start: 2015
  8. INDERAL [Concomitant]
     Active Substance: PROPRANOLOL HYDROCHLORIDE
     Dosage: 20 MG, 1X/DAY
     Dates: start: 2014
  9. PHENERGAN [Concomitant]
     Active Substance: PROMETHAZINE HYDROCHLORIDE
     Dosage: 25 MG, AS NEEDED
     Dates: start: 2011
  10. ADVAIR HFA [Concomitant]
     Active Substance: FLUTICASONE PROPIONATE\SALMETEROL XINAFOATE
     Dosage: UNK, AS NEEDED
     Dates: start: 2000
  11. LYRICA [Suspect]
     Active Substance: PREGABALIN
     Indication: NEUROPATHY PERIPHERAL
     Dosage: 75 MG, 2X/DAY
     Dates: start: 1999
  12. FLEXERIL [Concomitant]
     Active Substance: CYCLOBENZAPRINE HYDROCHLORIDE
     Dosage: 10 MG, AS NEEDED
     Dates: start: 2010
  13. ASA [Concomitant]
     Active Substance: ASPIRIN
     Dosage: 65 MG, 1X/DAY
     Dates: start: 2013
  14. BENADRYL [Concomitant]
     Active Substance: DIPHENHYDRAMINE HYDROCHLORIDE
     Dosage: 25 MG, AS NEEDED
     Dates: start: 2015
  15. LEVSIN SL [Concomitant]
     Active Substance: HYOSCYAMINE SULFATE
     Dosage: 0.125 MG, AS NEEDED
     Route: 060
     Dates: start: 1999

REACTIONS (1)
  - Migraine [Recovered/Resolved]

NARRATIVE: CASE EVENT DATE: 1999
